FAERS Safety Report 15755552 (Version 1)
Quarter: 2018Q4

REPORT INFORMATION
  Report Type: Spontaneous
  Country: US (occurrence: US)
  Receive Date: 20181224
  Receipt Date: 20181224
  Transmission Date: 20190205
  Serious: Yes (Other)
  Sender: FDA-Public Use
  Company Number: PHHY2018US192117

PATIENT
  Age: 63 Year
  Sex: Male

DRUGS (2)
  1. IMATINIB. [Suspect]
     Active Substance: IMATINIB MESYLATE
     Dosage: 300 MG, QD
     Route: 065
  2. IMATINIB. [Suspect]
     Active Substance: IMATINIB MESYLATE
     Indication: GASTROINTESTINAL STROMAL TUMOUR
     Dosage: 400 MG, QD
     Route: 065

REACTIONS (6)
  - Hepatotoxicity [Unknown]
  - Acute kidney injury [Unknown]
  - Hyperphosphataemia [Recovered/Resolved]
  - Tumour lysis syndrome [Recovered/Resolved]
  - Hyperkalaemia [Recovered/Resolved]
  - Failure to thrive [Unknown]
